FAERS Safety Report 5127308-9 (Version None)
Quarter: 2006Q4

REPORT INFORMATION
  Report Type: 
  Country: None (occurrence: None)
  Receive Date: 20061013
  Receipt Date: 20061004
  Transmission Date: 20070319
  Serious: Yes (Disabling)
  Sender: FDA-Public Use
  Company Number: AU-ABBOTT-06P-008-0345951-00

PATIENT
  Sex: Female

DRUGS (2)
  1. KLACID [Suspect]
     Indication: INFECTION
     Route: 048
     Dates: start: 20060401
  2. KLACID [Suspect]

REACTIONS (3)
  - GAIT DISTURBANCE [None]
  - HEADACHE [None]
  - TREMOR [None]
